FAERS Safety Report 6247492-3 (Version None)
Quarter: 2009Q2

REPORT INFORMATION
  Report Type: 
  Country: None (occurrence: None)
  Receive Date: 20090626
  Receipt Date: 20090616
  Transmission Date: 20091009
  Serious: Yes (Other)
  Sender: FDA-Public Use
  Company Number: KR-TEVA-198648ISR

PATIENT
  Sex: Male

DRUGS (7)
  1. ETOPOSIDE [Suspect]
  2. CYTARABINE [Suspect]
  3. THIOGUANINE [Suspect]
  4. DAUNORUBICIN HCL [Suspect]
  5. DEXAMETHASONE [Suspect]
  6. CYCLOPHOSPHAMIDE [Suspect]
  7. BUSULFAN [Suspect]

REACTIONS (1)
  - MUCOEPIDERMOID CARCINOMA [None]
